FAERS Safety Report 5596102-7 (Version None)
Quarter: 2008Q1

REPORT INFORMATION
  Report Type: 
  Country: None (occurrence: None)
  Receive Date: 20080118
  Receipt Date: 20080115
  Transmission Date: 20080703
  Serious: Yes (Hospitalization)
  Sender: FDA-Public Use
  Company Number: US-BOEHRINGER INGELHEIM PHARMACEUTICALS, INC.-2008-BP-00723BP

PATIENT
  Sex: Female

DRUGS (1)
  1. VIRAMUNE [Suspect]
     Indication: EXPOSURE TO COMMUNICABLE DISEASE
     Route: 048

REACTIONS (2)
  - PARAESTHESIA ORAL [None]
  - STEVENS-JOHNSON SYNDROME [None]
